FAERS Safety Report 6764718-8 (Version None)
Quarter: 2010Q2

REPORT INFORMATION
  Report Type: 
  Country: None (occurrence: None)
  Receive Date: 20100610
  Receipt Date: 20100608
  Transmission Date: 20101027
  Serious: Yes (Other)
  Sender: FDA-Public Use
  Company Number: BE-PFIZER INC-2010065952

PATIENT

DRUGS (1)
  1. MEDROL [Suspect]
     Dosage: 16 MG, 1X/DAY
     Route: 048
     Dates: start: 20100301, end: 20100312

REACTIONS (1)
  - RESPIRATORY TRACT INFECTION [None]
